FAERS Safety Report 8816090 (Version 1)
Quarter: 2012Q4

REPORT INFORMATION
  Report Type: 
  Country: US (occurrence: US)
  Receive Date: 20120928
  Receipt Date: 20120928
  Transmission Date: 20130627
  Serious: Yes (Other)
  Sender: FDA-Public Use
  Company Number: US-PFIZER INC-2012237140

PATIENT
  Sex: Male
  Weight: 81.63 kg

DRUGS (1)
  1. VFEND [Suspect]
     Indication: MENINGITIS COCCIDIOIDES
     Dosage: 400 mg, daily

REACTIONS (3)
  - Hepatic cirrhosis [Not Recovered/Not Resolved]
  - Blood albumin decreased [Unknown]
  - Prothrombin time prolonged [Unknown]
